FAERS Safety Report 7291663-4 (Version None)
Quarter: 2011Q1

REPORT INFORMATION
  Report Type: 
  Country: None (occurrence: None)
  Receive Date: 20110202
  Receipt Date: 20110117
  Transmission Date: 20110831
  Serious: Yes (Death, Other)
  Sender: FDA-Public Use
  Company Number: JP-ACCORD-008010

PATIENT
  Age: 80 Year
  Sex: Male

DRUGS (1)
  1. MITOMYCIN [Suspect]
     Indication: METASTASES TO LUNG

REACTIONS (5)
  - NEOPLASM MALIGNANT [None]
  - METASTASES TO LUNG [None]
  - CEREBRAL INFARCTION [None]
  - TUMOUR THROMBOSIS [None]
  - OFF LABEL USE [None]
